FAERS Safety Report 24060610 (Version 1)
Quarter: 2024Q3

REPORT INFORMATION
  Report Type: Spontaneous
  Country: US (occurrence: None)
  Receive Date: 20240705
  Receipt Date: 20240705
  Transmission Date: 20241016
  Serious: Yes (Other)
  Sender: Public
  Company Number: None

PATIENT
  Age: 83 Year
  Sex: Male
  Weight: 90.9 kg

DRUGS (13)
  1. AMIODARONE [Suspect]
     Active Substance: AMIODARONE
     Indication: Atrial fibrillation
     Dosage: OTHER QUANTITY : 1 CAPSULE(S);?OTHER FREQUENCY : 2X DA 1X;?
     Route: 048
  2. OZEMPIC [Concomitant]
     Active Substance: SEMAGLUTIDE
  3. FINASTERIDE [Concomitant]
     Active Substance: FINASTERIDE
  4. METOPROLOL [Concomitant]
     Active Substance: METOPROLOL
  5. SYNTHROID [Concomitant]
     Active Substance: LEVOTHYROXINE SODIUM
  6. ELIQUIS [Concomitant]
     Active Substance: APIXABAN
  7. TAMSULOSIN HYDROCHLORIDE [Concomitant]
     Active Substance: TAMSULOSIN HYDROCHLORIDE
  8. FARXIGA [Concomitant]
     Active Substance: DAPAGLIFLOZIN PROPANEDIOL
  9. VASCEPA [Concomitant]
     Active Substance: ICOSAPENT ETHYL
  10. DEVICE [Concomitant]
     Active Substance: DEVICE
  11. ABBOTT LIBRE 3 [Concomitant]
  12. MULTIVITAMIN WITH LYCOPENE [Concomitant]
  13. VITAMIN B WITH FOLIC ACID [Concomitant]

REACTIONS (2)
  - Papilloedema [None]
  - Optic ischaemic neuropathy [None]

NARRATIVE: CASE EVENT DATE: 20240328
